FAERS Safety Report 9392850 (Version 1)
Quarter: 2013Q3

REPORT INFORMATION
  Report Type: Spontaneous
  Country: US (occurrence: None)
  Receive Date: 20130708
  Receipt Date: 20130708
  Transmission Date: 20140515
  Serious: Yes (Other)
  Sender: FDA-Public Use
  Company Number: None

PATIENT
  Sex: Male
  Weight: 113.4 kg

DRUGS (9)
  1. INVEGA SUSTENNA [Suspect]
     Indication: BIPOLAR DISORDER
     Route: 042
     Dates: start: 201211
  2. INVEGA SUSTENNA [Suspect]
     Indication: SCHIZOPHRENIA
     Route: 042
     Dates: start: 201211
  3. LITHIUM [Concomitant]
  4. COGENTIN [Concomitant]
  5. LAMICTAL [Concomitant]
  6. CLONAZEPAN [Concomitant]
  7. ARICEPT [Concomitant]
  8. PROVIGIL [Concomitant]
  9. KLONPIN [Concomitant]

REACTIONS (2)
  - Palpitations [None]
  - Heart rate irregular [None]
